FAERS Safety Report 13424723 (Version 8)
Quarter: 2017Q3

REPORT INFORMATION
  Report Type: Report from Study
  Country: None (occurrence: ES)
  Receive Date: 20170410
  Receipt Date: 20170905
  Transmission Date: 20171127
  Serious: Yes (Hospitalization)
  Sender: FDA-Public Use
  Company Number: ES-ABBVIE-17P-144-1933504-00

PATIENT
  Age: 70 Year
  Sex: Female
  Weight: 64 kg

DRUGS (5)
  1. DUODOPA [Suspect]
     Active Substance: CARBIDOPA\LEVODOPA
     Indication: PARKINSON^S DISEASE
     Dosage: EXTRA DOSE: 2.5 ML
     Route: 050
     Dates: start: 20170222, end: 2017
  2. DUODOPA [Suspect]
     Active Substance: CARBIDOPA\LEVODOPA
     Dosage: CONTINUOUS DOSE 3.5 ML?EXTRA DOSE 3.2 ML
     Route: 050
     Dates: start: 2017
  3. DUODOPA [Suspect]
     Active Substance: CARBIDOPA\LEVODOPA
     Dosage: EXTRA DOSE: 2.7 ML
     Route: 050
     Dates: start: 2017, end: 2017
  4. DUODOPA [Suspect]
     Active Substance: CARBIDOPA\LEVODOPA
     Dosage: CONTINUOUS DOSE 3.4ML /EXTRA DOSE 3 ML
     Route: 050
     Dates: start: 2017, end: 2017
  5. DUODOPA [Suspect]
     Active Substance: CARBIDOPA\LEVODOPA
     Dosage: CONTINUOUS DOSE INCREASED FROM 3.2 TO 3.3ML, EXTRA DOSE: 2.9ML
     Route: 050
     Dates: start: 2017, end: 2017

REACTIONS (9)
  - Gait disturbance [Not Recovered/Not Resolved]
  - Freezing phenomenon [Recovering/Resolving]
  - Drug ineffective [Not Recovered/Not Resolved]
  - Optic neuritis [Recovering/Resolving]
  - Dyskinesia [Not Recovered/Not Resolved]
  - Gaze palsy [Recovered/Resolved]
  - On and off phenomenon [Recovered/Resolved]
  - Diplopia [Recovered/Resolved]
  - Tremor [Recovered/Resolved]

NARRATIVE: CASE EVENT DATE: 2017
